FAERS Safety Report 5875345-9 (Version None)
Quarter: 2008Q3

REPORT INFORMATION
  Report Type: 
  Country: None (occurrence: None)
  Receive Date: 20080904
  Receipt Date: 20080822
  Transmission Date: 20090109
  Serious: Yes (Other)
  Sender: FDA-Public Use
  Company Number: OPER20080166

PATIENT
  Sex: Male

DRUGS (1)
  1. OPANA ER [Suspect]

REACTIONS (1)
  - DRUG DIVERSION [None]
